FAERS Safety Report 8074834-9 (Version None)
Quarter: 2012Q1

REPORT INFORMATION
  Report Type: 
  Country: None (occurrence: None)
  Receive Date: 20120126
  Receipt Date: 20120117
  Transmission Date: 20120608
  Serious: Yes (Other)
  Sender: FDA-Public Use
  Company Number: US-ASTRAZENECA-2011SE30765

PATIENT
  Age: 58 Year
  Sex: Female

DRUGS (1)
  1. NEXIUM [Suspect]
     Route: 048

REACTIONS (9)
  - DRUG DOSE OMISSION [None]
  - MOOD ALTERED [None]
  - SLEEP APNOEA SYNDROME [None]
  - HEADACHE [None]
  - JOINT INJURY [None]
  - FALL [None]
  - SOMNOLENCE [None]
  - PAIN [None]
  - INSOMNIA [None]
